FAERS Safety Report 11058446 (Version 1)
Quarter: 2015Q2

REPORT INFORMATION
  Report Type: Spontaneous
  Country: US (occurrence: US)
  Receive Date: 20150423
  Receipt Date: 20150423
  Transmission Date: 20150821
  Serious: Yes (Other)
  Sender: FDA-Public Use
  Company Number: US-SUN PHARMACEUTICAL INDUSTRIES LTD-2015SUN01025

PATIENT
  Age: 73 Year
  Sex: Male

DRUGS (1)
  1. CARBIDOPA + LEVODOPA ER TABS 25MG/100MG [Suspect]
     Active Substance: CARBIDOPA\LEVODOPA
     Indication: PARKINSON^S DISEASE
     Route: 065

REACTIONS (2)
  - Dopamine dysregulation syndrome [Recovered/Resolved]
  - Dyskinesia [Not Recovered/Not Resolved]
